FAERS Safety Report 21168100 (Version 1)
Quarter: 2022Q3

REPORT INFORMATION
  Report Type: Spontaneous
  Country: US (occurrence: None)
  Receive Date: 20220803
  Receipt Date: 20220803
  Transmission Date: 20221026
  Serious: Yes (Hospitalization)
  Sender: FDA-Public Use
  Company Number: None

PATIENT
  Age: 70 Year
  Weight: 232.00 kg

DRUGS (7)
  1. IBRANCE [Suspect]
     Active Substance: PALBOCICLIB
     Indication: Breast cancer female
     Dosage: OTHER FREQUENCY : 21DON7D OFF;?
     Route: 048
  2. FEMARA [Concomitant]
  3. FUROSEMIDE [Concomitant]
  4. LEVOTHYROXINE [Concomitant]
  5. MULTIVITAMIN [Concomitant]
  6. PANTOPRAZOLE [Concomitant]
  7. URSODIOL [Concomitant]

REACTIONS (3)
  - Gallbladder disorder [None]
  - Blood bilirubin increased [None]
  - Therapy interrupted [None]
